FAERS Safety Report 23319562 (Version 1)
Quarter: 2023Q4

REPORT INFORMATION
  Report Type: Spontaneous
  Country: PL (occurrence: PL)
  Receive Date: 20231220
  Receipt Date: 20231220
  Transmission Date: 20240109
  Serious: Yes (Other)
  Sender: FDA-Public Use
  Company Number: PL-009507513-2312POL004884

PATIENT
  Age: 8 Year
  Sex: Female

DRUGS (9)
  1. CASPOFUNGIN ACETATE [Suspect]
     Active Substance: CASPOFUNGIN ACETATE
     Indication: Bronchopulmonary aspergillosis
     Dosage: UNK
  2. TACROLIMUS [Suspect]
     Active Substance: TACROLIMUS
     Dosage: UNK
  3. VORICONAZOLE [Suspect]
     Active Substance: VORICONAZOLE
     Indication: Bronchopulmonary aspergillosis
     Dosage: UNK
  4. PIPERACILLIN [Suspect]
     Active Substance: PIPERACILLIN
     Indication: Bronchopulmonary aspergillosis
     Dosage: UNK
  5. TEICOPLANIN [Suspect]
     Active Substance: TEICOPLANIN
     Indication: Bronchopulmonary aspergillosis
     Dosage: UNK
  6. CLARITHROMYCIN [Suspect]
     Active Substance: CLARITHROMYCIN
     Indication: Bronchopulmonary aspergillosis
     Dosage: UNK
  7. MEROPENEM [Suspect]
     Active Substance: MEROPENEM
     Indication: Bronchopulmonary aspergillosis
     Dosage: UNK
  8. VANCOMYCIN [Concomitant]
     Active Substance: VANCOMYCIN
     Indication: Device related infection
  9. VANCOMYCIN [Concomitant]
     Active Substance: VANCOMYCIN
     Indication: Pseudomonas infection

REACTIONS (2)
  - Drug ineffective [Unknown]
  - Labelled drug-drug interaction issue [Unknown]
